FAERS Safety Report 4985317-4 (Version None)
Quarter: 2006Q2

REPORT INFORMATION
  Report Type: 
  Country: None (occurrence: None)
  Receive Date: 20060427
  Receipt Date: 20060302
  Transmission Date: 20061013
  Serious: Yes (Hospitalization, Disabling, Other)
  Sender: FDA-Public Use
  Company Number: US-MERCK-0603USA00762

PATIENT
  Age: 61 Year
  Sex: Female
  Weight: 65 kg

DRUGS (7)
  1. VIOXX [Suspect]
     Indication: BURSITIS
     Route: 048
     Dates: start: 20000125, end: 20040930
  2. VIOXX [Suspect]
     Indication: ARTHRITIS
     Route: 048
     Dates: start: 20000125, end: 20040930
  3. LEVOTHROID [Concomitant]
     Indication: HYPOTHYROIDISM
     Route: 065
  4. MEPROZINE [Concomitant]
     Indication: PAIN
     Route: 065
     Dates: start: 20000101
  5. WELLBUTRIN [Concomitant]
     Indication: ANXIETY
     Route: 065
  6. SKELAXIN [Concomitant]
     Route: 065
  7. AVELOX [Concomitant]
     Route: 065

REACTIONS (11)
  - ANXIETY [None]
  - BLOOD CHOLESTEROL INCREASED [None]
  - CEREBROVASCULAR ACCIDENT [None]
  - CHEST PAIN [None]
  - CHOLECYSTITIS ACUTE [None]
  - CONVULSION [None]
  - CORONARY ARTERY DISEASE [None]
  - DEPRESSION [None]
  - DRUG HYPERSENSITIVITY [None]
  - HYPERTENSION [None]
  - TRANSIENT ISCHAEMIC ATTACK [None]
